FAERS Safety Report 23047447 (Version 1)
Quarter: 2023Q4

REPORT INFORMATION
  Report Type: Spontaneous
  Country: US (occurrence: US)
  Receive Date: 20231010
  Receipt Date: 20231010
  Transmission Date: 20240109
  Serious: No
  Sender: FDA-Public Use
  Company Number: US-CELLTRION INC.-2022US009702

PATIENT

DRUGS (1)
  1. INFLECTRA [Suspect]
     Active Substance: INFLIXIMAB-DYYB
     Indication: Product used for unknown indication
     Dosage: 5 MG/KG, CYCLIC, [5 M/KG AT WEEKS 0, 2, 6 AND THEN EVERY 8 WEEKS  FOR MAINTENANCE DOSE]; UNKNOWN
     Route: 065

REACTIONS (2)
  - Product temperature excursion issue [Unknown]
  - Product prescribing issue [Unknown]
